FAERS Safety Report 8366355-0 (Version None)
Quarter: 2012Q2

REPORT INFORMATION
  Report Type: 
  Country: None (occurrence: None)
  Receive Date: 20120517
  Receipt Date: 20120511
  Transmission Date: 20120825
  Serious: Yes (Hospitalization, Other)
  Sender: FDA-Public Use
  Company Number: US-BAYER-2012-047088

PATIENT
  Age: 26 Year
  Sex: Female
  Weight: 70 kg

DRUGS (4)
  1. YASMIN [Suspect]
  2. PROZAC [Concomitant]
     Dosage: UNK
     Dates: start: 20030909
  3. FLUOXETINE [Concomitant]
     Dosage: 20 MG, QD
  4. IBUPROFEN [Concomitant]
     Dosage: 400 MG, PRN

REACTIONS (2)
  - PULMONARY EMBOLISM [None]
  - CHOLECYSTITIS CHRONIC [None]
